FAERS Safety Report 21767907 (Version 1)
Quarter: 2022Q4

REPORT INFORMATION
  Report Type: Spontaneous
  Country: US (occurrence: US)
  Receive Date: 20221222
  Receipt Date: 20221222
  Transmission Date: 20230113
  Serious: Yes (Other)
  Sender: FDA-Public Use
  Company Number: US-JNJFOC-20221231022

PATIENT
  Age: 4 Decade
  Sex: Female

DRUGS (2)
  1. ELMIRON [Suspect]
     Active Substance: PENTOSAN POLYSULFATE SODIUM
     Indication: Cystitis interstitial
     Route: 048
  2. ELMIRON [Suspect]
     Active Substance: PENTOSAN POLYSULFATE SODIUM
     Dosage: 1 PILL DAILY-3 TIMES DAILY
     Route: 048

REACTIONS (3)
  - Dry age-related macular degeneration [Unknown]
  - Liver function test increased [Unknown]
  - Off label use [Unknown]

NARRATIVE: CASE EVENT DATE: 19970101
